FAERS Safety Report 11525520 (Version 2)
Quarter: 2015Q4

REPORT INFORMATION
  Report Type: Spontaneous
  Country: US (occurrence: JP)
  Receive Date: 20150918
  Receipt Date: 20151022
  Transmission Date: 20160304
  Serious: Yes (Other)
  Sender: FDA-Public Use
  Company Number: US-AKORN PHARMACEUTICALS-2015AKN00534

PATIENT
  Age: 75 Year
  Sex: Female

DRUGS (6)
  1. AZOPT [Concomitant]
     Active Substance: BRINZOLAMIDE
     Dosage: UNK
     Route: 001
     Dates: start: 20150417
  2. KARY UNI [Concomitant]
     Active Substance: PIRENOXINE
     Dosage: UNK
     Route: 047
     Dates: start: 20130626, end: 20150515
  3. HYALURONATE SODIUM [Concomitant]
     Active Substance: HYALURONATE SODIUM
     Dosage: UNK
     Route: 001
     Dates: start: 20140225
  4. GLANATEC [Concomitant]
     Dosage: UNK
     Route: 001
     Dates: start: 20150515
  5. FLUOROMETHOLONE. [Concomitant]
     Active Substance: FLUOROMETHOLONE
     Dosage: UNK
     Route: 001
     Dates: start: 20150318, end: 20150323
  6. ZIOPTAN [Suspect]
     Active Substance: TAFLUPROST
     Indication: OCULAR HYPERTENSION
     Dosage: 1 GTT SINGLE, OU
     Route: 047
     Dates: start: 20150318, end: 20150703

REACTIONS (2)
  - Asthenia [Unknown]
  - Chest discomfort [Unknown]

NARRATIVE: CASE EVENT DATE: 201504
